FAERS Safety Report 10637309 (Version 1)
Quarter: 2014Q4

REPORT INFORMATION
  Report Type: Spontaneous
  Country: US (occurrence: None)
  Receive Date: 20141204
  Receipt Date: 20141204
  Transmission Date: 20150529
  Serious: Yes (Disabling)
  Sender: FDA-Public Use
  Company Number: None

PATIENT
  Age: 56 Year
  Sex: Male
  Weight: 74.84 kg

DRUGS (1)
  1. CIPROFLOXACIN. [Suspect]
     Active Substance: CIPROFLOXACIN
     Indication: SINUSITIS
     Route: 048
     Dates: start: 20140425, end: 20140430

REACTIONS (6)
  - Anxiety [None]
  - Tendon pain [None]
  - Depression [None]
  - Arthralgia [None]
  - Myalgia [None]
  - Neuropathy peripheral [None]

NARRATIVE: CASE EVENT DATE: 20140425
